FAERS Safety Report 5635483-2 (Version None)
Quarter: 2008Q1

REPORT INFORMATION
  Report Type: 
  Country: None (occurrence: None)
  Receive Date: 20080131
  Receipt Date: 20071202
  Transmission Date: 20080703
  Serious: No
  Sender: FDA-Public Use
  Company Number: US200712000327

PATIENT
  Age: 66 Year
  Sex: Female
  Weight: 72.6 kg

DRUGS (4)
  1. BYETTA [Suspect]
     Indication: TYPE 2 DIABETES MELLITUS
     Dosage: 5 UG, 2/D, SUBCUTANEOUS
     Route: 058
     Dates: start: 20060101
  2. METFORMIN HCL [Concomitant]
  3. DRUG USE IN DIABETES [Concomitant]
  4. ACTOS [Concomitant]

REACTIONS (4)
  - CHEST DISCOMFORT [None]
  - DRUG EFFECT DECREASED [None]
  - EARLY SATIETY [None]
  - FEELING ABNORMAL [None]
